FAERS Safety Report 9654437 (Version 1)
Quarter: 2013Q4

REPORT INFORMATION
  Report Type: Report from Study
  Country: CA (occurrence: CA)
  Receive Date: 20131029
  Receipt Date: 20131029
  Transmission Date: 20140711
  Serious: Yes (Other)
  Sender: FDA-Public Use
  Company Number: PHHY2013CA122103

PATIENT
  Sex: Male

DRUGS (2)
  1. ACLASTA [Suspect]
     Indication: OSTEOPOROSIS
     Dosage: UNK
     Route: 042
     Dates: start: 20110823
  2. ACLASTA [Suspect]
     Dosage: UNK
     Route: 042
     Dates: start: 20120822

REACTIONS (4)
  - Brain neoplasm [Unknown]
  - VIIth nerve paralysis [Unknown]
  - Postoperative wound infection [Unknown]
  - Impaired healing [Unknown]
